FAERS Safety Report 6142217-4 (Version None)
Quarter: 2009Q2

REPORT INFORMATION
  Report Type: 
  Country: None (occurrence: None)
  Receive Date: 20090403
  Receipt Date: 20070312
  Transmission Date: 20091009
  Serious: Yes (Disabling, Other)
  Sender: FDA-Public Use
  Company Number: US-ASTRAZENECA-2006UW20999

PATIENT
  Age: 18730 Day
  Sex: Male
  Weight: 80.7 kg

DRUGS (15)
  1. SEROQUEL [Suspect]
     Dosage: 25MG-175MG
     Route: 048
     Dates: start: 20040826
  2. GLYBURIDE [Concomitant]
  3. FUROSEMIDE [Concomitant]
  4. LANTUS VIAL [Concomitant]
  5. LISINOPRIL [Concomitant]
  6. HYDROC/APAP5 [Concomitant]
  7. BUPROPION HCL [Concomitant]
  8. METFORMIN HCL [Concomitant]
  9. LUNESTA [Concomitant]
  10. PREVPAC [Concomitant]
  11. VYTORIN [Concomitant]
  12. FLEXERIL [Concomitant]
  13. DEPAKOTE [Concomitant]
  14. MELOXICAM [Concomitant]
  15. COREG [Concomitant]

REACTIONS (12)
  - ABSCESS LIMB [None]
  - BACK PAIN [None]
  - CHEST PAIN [None]
  - CORONARY ARTERY DISEASE [None]
  - CORONARY ARTERY STENOSIS [None]
  - DEAFNESS [None]
  - EAR PAIN [None]
  - FATIGUE [None]
  - ILL-DEFINED DISORDER [None]
  - MYOCARDIAL INFARCTION [None]
  - OBESITY [None]
  - SLEEP APNOEA SYNDROME [None]
